FAERS Safety Report 22778729 (Version 4)
Quarter: 2024Q3

REPORT INFORMATION
  Report Type: Spontaneous
  Country: US (occurrence: US)
  Receive Date: 20230802
  Receipt Date: 20240808
  Transmission Date: 20241017
  Serious: No
  Sender: SANOFI AVENTIS
  Company Number: US-SA-SAC20230801000587

PATIENT
  Age: 73 Year
  Sex: Male

DRUGS (2)
  1. REZUROCK [Suspect]
     Active Substance: BELUMOSUDIL
     Indication: Chronic graft versus host disease
     Dosage: 200 MG, QD
     Route: 048
     Dates: start: 20230630
  2. JAKAFI [Concomitant]
     Active Substance: RUXOLITINIB
     Dosage: UNK

REACTIONS (10)
  - Muscle tightness [Unknown]
  - Brain fog [Unknown]
  - Stress [Unknown]
  - Amnesia [Unknown]
  - Hypoaesthesia [Unknown]
  - Eye irritation [Unknown]
  - Swelling [Unknown]
  - Neuralgia [Unknown]
  - Peripheral swelling [Not Recovered/Not Resolved]
  - Pain in extremity [Unknown]
